FAERS Safety Report 7658736-5 (Version None)
Quarter: 2011Q3

REPORT INFORMATION
  Report Type: 
  Country: None (occurrence: None)
  Receive Date: 20110802
  Receipt Date: 20110725
  Transmission Date: 20111222
  Serious: Yes (Hospitalization, Other)
  Sender: FDA-Public Use
  Company Number: JPI-P-001096

PATIENT
  Age: 40 Year
  Sex: Female
  Weight: 58.9676 kg

DRUGS (14)
  1. LAMOTRIGINE [Concomitant]
  2. LOSARTAN POTASSIUM [Concomitant]
  3. XYREM [Suspect]
     Indication: SLEEP DISORDER
     Dosage: SEE IMAGE
     Route: 048
     Dates: start: 20060615
  4. XYREM [Suspect]
     Indication: FIBROMYALGIA
     Dosage: SEE IMAGE
     Route: 048
     Dates: start: 20060615
  5. XYREM [Suspect]
     Indication: SLEEP DISORDER
     Dosage: SEE IMAGE
     Route: 048
     Dates: start: 20061101, end: 20070101
  6. XYREM [Suspect]
     Indication: FIBROMYALGIA
     Dosage: SEE IMAGE
     Route: 048
     Dates: start: 20061101, end: 20070101
  7. XYREM [Suspect]
     Indication: SLEEP DISORDER
     Dosage: SEE IMAGE
     Route: 048
     Dates: start: 20070407, end: 20070429
  8. XYREM [Suspect]
     Indication: FIBROMYALGIA
     Dosage: SEE IMAGE
     Route: 048
     Dates: start: 20070407, end: 20070429
  9. XYREM [Suspect]
     Indication: SLEEP DISORDER
     Dosage: SEE IMAGE
     Route: 048
     Dates: start: 20070101, end: 20070401
  10. XYREM [Suspect]
     Indication: FIBROMYALGIA
     Dosage: SEE IMAGE
     Route: 048
     Dates: start: 20070101, end: 20070401
  11. ZOLPIDEM TARTRATE [Concomitant]
  12. UNSPECIFIED PAIN MEDICATIONS [Concomitant]
  13. THYROID TAB [Concomitant]
  14. HYDR000DONE BITARTRATE AND ACETAMINOPHEN [Concomitant]

REACTIONS (12)
  - GASTRITIS [None]
  - CHOLELITHIASIS [None]
  - MUSCULOSKELETAL CHEST PAIN [None]
  - ENDOMETRIOSIS [None]
  - DYSPEPSIA [None]
  - BACK PAIN [None]
  - ABDOMINAL PAIN [None]
  - BLOOD PRESSURE INCREASED [None]
  - INSOMNIA [None]
  - SPINAL FUSION SURGERY [None]
  - DIZZINESS [None]
  - PAIN [None]
